FAERS Safety Report 8318280-9 (Version None)
Quarter: 2012Q2

REPORT INFORMATION
  Report Type: 
  Country: None (occurrence: None)
  Receive Date: 20120425
  Receipt Date: 20120412
  Transmission Date: 20120825
  Serious: Yes (Other)
  Sender: FDA-Public Use
  Company Number: 2012MA005053

PATIENT
  Age: 59 Year
  Sex: Female

DRUGS (4)
  1. CANDESARTAN CILEXETIL [Concomitant]
  2. DOXAZOSIN MESYLATE [Suspect]
  3. ATENOLOL [Concomitant]
  4. EZETIMIBE [Concomitant]

REACTIONS (4)
  - GAIT DISTURBANCE [None]
  - MUSCULOSKELETAL PAIN [None]
  - MUSCULAR WEAKNESS [None]
  - PAIN IN EXTREMITY [None]
